FAERS Safety Report 10666410 (Version 2)
Quarter: 2014Q4

REPORT INFORMATION
  Report Type: Spontaneous
  Country: US (occurrence: US)
  Receive Date: 20141220
  Receipt Date: 20141220
  Transmission Date: 20150529
  Serious: No
  Sender: FDA-Public Use
  Company Number: US-BAUSCH-SYM-2013-14288

PATIENT
  Sex: Male

DRUGS (1)
  1. XENAZINE [Suspect]
     Active Substance: TETRABENAZINE
     Indication: HUNTINGTON^S DISEASE
     Dosage: 2 TABLETS IN THE MORNING, 1 EVERY AFTERNOON, 2 TABLETS EVERY EVENING
     Route: 048
     Dates: start: 20131006

REACTIONS (5)
  - Mood swings [Unknown]
  - Slow response to stimuli [Unknown]
  - Agitation [Unknown]
  - Anger [Not Recovered/Not Resolved]
  - Blood pressure increased [Unknown]

NARRATIVE: CASE EVENT DATE: 2013
